FAERS Safety Report 10418851 (Version 1)
Quarter: 2014Q2

REPORT INFORMATION
  Report Type: Spontaneous
  Country: US (occurrence: None)
  Receive Date: 20140625
  Receipt Date: 20140625
  Transmission Date: 20141212
  Serious: No
  Sender: FDA-Public Use
  Company Number: A-US2014-96696

PATIENT
  Age: 76 Year
  Sex: Female

DRUGS (6)
  1. OPSUMIT (MACITENTAN) [Suspect]
     Indication: PULMONARY ARTERIAL HYPERTENSION
     Route: 048
     Dates: end: 20140206
  2. ADCIRCA (TADALAFIL) [Concomitant]
  3. REVATIO (SILDENAFIL CITRATE) [Concomitant]
  4. CYMBALTA (DULOXETINE HYDROCHLORIDE) [Concomitant]
  5. CLONAZEPAM [Concomitant]
  6. ESCITALOPRAM (ESCITALOPRAM OXALATE) [Concomitant]

REACTIONS (3)
  - Drug interaction [None]
  - Dizziness [None]
  - Headache [None]
